FAERS Safety Report 5904697-6 (Version None)
Quarter: 2008Q4

REPORT INFORMATION
  Report Type: 
  Country: None (occurrence: None)
  Receive Date: 20081001
  Receipt Date: 20080925
  Transmission Date: 20090506
  Serious: Yes (Death, Other)
  Sender: FDA-Public Use
  Company Number: IT-CELGENEUS-083-20785-08091443

PATIENT

DRUGS (6)
  1. THALOMID [Suspect]
     Indication: AMYLOIDOSIS
     Route: 048
     Dates: start: 20041101, end: 20060401
  2. MELPHALAN [Suspect]
     Indication: AMYLOIDOSIS
     Route: 048
     Dates: start: 20041101, end: 20060401
  3. DEXAMETHASONE [Suspect]
     Indication: AMYLOIDOSIS
     Route: 048
     Dates: start: 20041101, end: 20060401
  4. ENOXAPARIN SODIUM [Concomitant]
     Indication: PROPHYLAXIS
     Route: 065
  5. CIPROFLOXACIN [Concomitant]
     Indication: DRUG USE FOR UNKNOWN INDICATION
     Route: 065
  6. OMEPRAZOLE [Concomitant]
     Indication: DRUG USE FOR UNKNOWN INDICATION
     Route: 065

REACTIONS (9)
  - BRADYCARDIA [None]
  - CARDIAC AMYLOIDOSIS [None]
  - CARDIAC FAILURE [None]
  - EJECTION FRACTION [None]
  - EMBOLISM [None]
  - FLUID RETENTION [None]
  - RENAL FAILURE [None]
  - SEPSIS [None]
  - SUDDEN DEATH [None]
